FAERS Safety Report 18464967 (Version 2)
Quarter: 2021Q2

REPORT INFORMATION
  Report Type: Report from Study
  Country: FR (occurrence: FR)
  Receive Date: 20201104
  Receipt Date: 20210607
  Transmission Date: 20210717
  Serious: Yes (Hospitalization, Other)
  Sender: FDA-Public Use
  Company Number: FR-TAKEDA-2020TUS046716

PATIENT
  Age: 66 Year
  Sex: Female

DRUGS (16)
  1. TEDUGLUTIDE [Suspect]
     Active Substance: TEDUGLUTIDE
     Indication: SHORT-BOWEL SYNDROME
     Dosage: 2 MILLIGRAM, (DAILY DOSE 0.05 MG/KG), TED DOSES PER WEEK 7
     Route: 065
     Dates: start: 20180527
  2. KAYEXALATE [Concomitant]
     Active Substance: SODIUM POLYSTYRENE SULFONATE
     Indication: ELECTROLYTE IMBALANCE
     Dosage: 2 UNK, QD
     Route: 048
  3. FENTANYL. [Concomitant]
     Active Substance: FENTANYL
     Indication: PAIN
     Dosage: UNK UNK, QD
     Route: 062
     Dates: end: 202012
  4. VANCOMYCINE [Concomitant]
     Active Substance: VANCOMYCIN
     Indication: SEPSIS
     Dosage: UNK UNK, QD
     Route: 042
     Dates: start: 20201203, end: 20201208
  5. IMOVANE [Concomitant]
     Active Substance: ZOPICLONE
     Indication: INSOMNIA
     Dosage: 3.75 MILLIGRAM, QD
     Route: 048
  6. TEDUGLUTIDE [Suspect]
     Active Substance: TEDUGLUTIDE
     Indication: SHORT-BOWEL SYNDROME
     Dosage: 2 MILLIGRAM, (DAILY DOSE 0.05 MG/KG), TED DOSES PER WEEK 7
     Route: 065
     Dates: start: 20180527
  7. PREGABALINE [Concomitant]
     Active Substance: PREGABALIN
     Indication: PAIN PROPHYLAXIS
     Dosage: 75 MILLIGRAM, BID
     Route: 048
  8. TEDUGLUTIDE [Suspect]
     Active Substance: TEDUGLUTIDE
     Dosage: 2MILLIGRAM,(DAILY DOSE 0.050MILLIGRAM)
     Route: 065
     Dates: start: 20180527, end: 20200905
  9. TEDUGLUTIDE [Suspect]
     Active Substance: TEDUGLUTIDE
     Dosage: 2MILLIGRAM,(DAILY DOSE 0.050MILLIGRAM)
     Route: 065
     Dates: start: 20180527, end: 20200905
  10. AUGMENTIN [Concomitant]
     Active Substance: AMOXICILLIN\CLAVULANATE POTASSIUM
     Indication: INFECTION PROPHYLAXIS
     Dosage: 3 GRAM, QD
     Route: 065
     Dates: start: 20181024, end: 20181027
  11. OXYNORM [Concomitant]
     Active Substance: OXYCODONE HYDROCHLORIDE
     Indication: PAIN
     Dosage: UNK UNK, PRN
     Route: 042
     Dates: start: 202012, end: 202012
  12. TEDUGLUTIDE [Suspect]
     Active Substance: TEDUGLUTIDE
     Indication: SHORT-BOWEL SYNDROME
     Dosage: 2 MILLIGRAM, (DAILY DOSE 0.05 MG/KG), TED DOSES PER WEEK 7
     Route: 065
     Dates: start: 20180527
  13. TEDUGLUTIDE [Suspect]
     Active Substance: TEDUGLUTIDE
     Indication: SHORT-BOWEL SYNDROME
     Dosage: 2 MILLIGRAM, (DAILY DOSE 0.05 MG/KG), TED DOSES PER WEEK 7
     Route: 065
     Dates: start: 20180527
  14. TEDUGLUTIDE [Suspect]
     Active Substance: TEDUGLUTIDE
     Dosage: 2MILLIGRAM,(DAILY DOSE 0.050MILLIGRAM)
     Route: 065
     Dates: start: 20180527, end: 20200905
  15. TEDUGLUTIDE [Suspect]
     Active Substance: TEDUGLUTIDE
     Dosage: 2MILLIGRAM,(DAILY DOSE 0.050MILLIGRAM)
     Route: 065
     Dates: start: 20180527, end: 20200905
  16. TAZOCILLINE [Concomitant]
     Active Substance: PIPERACILLIN SODIUM\TAZOBACTAM SODIUM
     Indication: SEPSIS
     Dosage: UNK UNK, QD
     Route: 042
     Dates: start: 20201203, end: 20201208

REACTIONS (1)
  - Gastrointestinal haemorrhage [Recovered/Resolved]

NARRATIVE: CASE EVENT DATE: 20200616
